FAERS Safety Report 6816310-4 (Version None)
Quarter: 2010Q2

REPORT INFORMATION
  Report Type: 
  Country: None (occurrence: None)
  Receive Date: 20100630
  Receipt Date: 20100617
  Transmission Date: 20101027
  Serious: Yes (Death, Life-Threatening)
  Sender: FDA-Public Use
  Company Number: 2009SP002567

PATIENT
  Age: 44 Year
  Sex: Male
  Weight: 57.38 kg

DRUGS (7)
  1. PEG-INTRON [Suspect]
     Indication: HEPATITIS C
     Dosage: 96 MCG;QW;SC
     Route: 058
     Dates: start: 20081204, end: 20090122
  2. REBETOL [Suspect]
     Indication: HEPATITIS C
     Dosage: 800 MG;QD;PO
     Route: 048
     Dates: start: 20081204, end: 20090127
  3. PLACEBO [Suspect]
     Indication: HEPATITIS C
     Dosage: 2400 MG;QD;PO
     Route: 048
     Dates: start: 20081230, end: 20090127
  4. ACETAMINOPHEN (CON.) [Concomitant]
  5. VITAMIN C (CON.) [Concomitant]
  6. FOLIC ACID (CON.) [Concomitant]
  7. IRON (CON.) [Concomitant]

REACTIONS (5)
  - AGITATION [None]
  - GUN SHOT WOUND [None]
  - INTENTIONAL SELF-INJURY [None]
  - PHYSICAL ASSAULT [None]
  - RASH [None]
